FAERS Safety Report 13819238 (Version 1)
Quarter: 2017Q3

REPORT INFORMATION
  Report Type: Spontaneous
  Country: US (occurrence: US)
  Receive Date: 20170731
  Receipt Date: 20170731
  Transmission Date: 20171127
  Serious: Yes (Other)
  Sender: FDA-Public Use
  Company Number: None

PATIENT
  Age: 29 Year
  Sex: Female
  Weight: 72.9 kg

DRUGS (8)
  1. TRI-PREVIFEM [Concomitant]
     Active Substance: ETHINYL ESTRADIOL\NORGESTIMATE
  2. LEVOFLOXACIN 750 MG [Suspect]
     Active Substance: LEVOFLOXACIN
     Indication: LOCALISED INFECTION
     Dosage: ?          QUANTITY:1 TABLET(S);?
     Route: 048
     Dates: start: 20170728, end: 20170731
  3. LEVOFLOXACIN 750 MG [Suspect]
     Active Substance: LEVOFLOXACIN
     Indication: URINARY TRACT INFECTION
     Dosage: ?          QUANTITY:1 TABLET(S);?
     Route: 048
     Dates: start: 20170728, end: 20170731
  4. BUPROPION XL [Concomitant]
     Active Substance: BUPROPION
  5. FLUCONAZOLE. [Concomitant]
     Active Substance: FLUCONAZOLE
  6. MULTIVITAMIN [Concomitant]
     Active Substance: VITAMINS
  7. LORAZEPAM. [Concomitant]
     Active Substance: LORAZEPAM
  8. IBUPROFEN. [Concomitant]
     Active Substance: IBUPROFEN

REACTIONS (23)
  - Muscle spasms [None]
  - Tremor [None]
  - Musculoskeletal stiffness [None]
  - Paranoia [None]
  - Burning sensation [None]
  - Initial insomnia [None]
  - Dysphemia [None]
  - Dry mouth [None]
  - Depressed level of consciousness [None]
  - Bruxism [None]
  - Tongue disorder [None]
  - Memory impairment [None]
  - Panic reaction [None]
  - Paraesthesia [None]
  - Dysphagia [None]
  - Speech disorder [None]
  - Thinking abnormal [None]
  - Formication [None]
  - Dyspnoea [None]
  - Anxiety [None]
  - Nausea [None]
  - Muscle twitching [None]
  - Hallucination, auditory [None]

NARRATIVE: CASE EVENT DATE: 20170730
